FAERS Safety Report 5960839-8 (Version None)
Quarter: 2008Q4

REPORT INFORMATION
  Report Type: 
  Country: None (occurrence: None)
  Receive Date: 20081112
  Receipt Date: 20080513
  Transmission Date: 20090506
  Serious: Yes (Other)
  Sender: FDA-Public Use
  Company Number: 2008S1000179

PATIENT
  Age: 70 Year
  Sex: Male

DRUGS (2)
  1. CUBICIN [Suspect]
     Indication: ARTHRITIS INFECTIVE
  2. CUBICIN [Suspect]
     Indication: STAPHYLOCOCCAL INFECTION

REACTIONS (1)
  - EOSINOPHILIC PNEUMONIA [None]
